FAERS Safety Report 25227475 (Version 2)
Quarter: 2025Q2

REPORT INFORMATION
  Report Type: Spontaneous
  Country: JP (occurrence: JP)
  Receive Date: 20250422
  Receipt Date: 20250616
  Transmission Date: 20250717
  Serious: Yes (Death, Other)
  Sender: IPSEN BIOPHARMACEUTICALS, INC.
  Company Number: JP-SERVIER-S25004843

PATIENT
  Age: 75 Year
  Sex: Male

DRUGS (29)
  1. ONIVYDE [Suspect]
     Active Substance: IRINOTECAN HYDROCHLORIDE
     Indication: Ductal adenocarcinoma of pancreas
     Route: 065
  2. ONIVYDE [Suspect]
     Active Substance: IRINOTECAN HYDROCHLORIDE
     Route: 065
  3. ONIVYDE [Suspect]
     Active Substance: IRINOTECAN HYDROCHLORIDE
     Route: 065
  4. ONIVYDE [Suspect]
     Active Substance: IRINOTECAN HYDROCHLORIDE
     Route: 065
  5. PALONOSETRON [Suspect]
     Active Substance: PALONOSETRON
     Indication: Prophylaxis of nausea and vomiting
  6. PALONOSETRON [Suspect]
     Active Substance: PALONOSETRON
  7. GEMCITABINE HYDROCHLORIDE [Suspect]
     Active Substance: GEMCITABINE HYDROCHLORIDE
     Indication: Ductal adenocarcinoma of pancreas
  8. GEMCITABINE HYDROCHLORIDE [Suspect]
     Active Substance: GEMCITABINE HYDROCHLORIDE
  9. PACLITAXEL [Suspect]
     Active Substance: PACLITAXEL
     Indication: Ductal adenocarcinoma of pancreas
  10. PACLITAXEL [Suspect]
     Active Substance: PACLITAXEL
  11. OXALIPLATIN [Suspect]
     Active Substance: OXALIPLATIN
     Indication: Ductal adenocarcinoma of pancreas
  12. DEXAMETHASONE [Concomitant]
     Active Substance: DEXAMETHASONE
     Indication: Prophylaxis of nausea and vomiting
  13. DEXAMETHASONE [Concomitant]
     Active Substance: DEXAMETHASONE
  14. DEXAMETHASONE [Concomitant]
     Active Substance: DEXAMETHASONE
  15. DEXAMETHASONE [Concomitant]
     Active Substance: DEXAMETHASONE
  16. DEXAMETHASONE [Concomitant]
     Active Substance: DEXAMETHASONE
  17. DEXAMETHASONE [Concomitant]
     Active Substance: DEXAMETHASONE
  18. DEXAMETHASONE [Concomitant]
     Active Substance: DEXAMETHASONE
  19. DEXAMETHASONE [Concomitant]
     Active Substance: DEXAMETHASONE
  20. DEXAMETHASONE [Concomitant]
     Active Substance: DEXAMETHASONE
  21. DEXAMETHASONE [Concomitant]
     Active Substance: DEXAMETHASONE
  22. DEXAMETHASONE [Concomitant]
     Active Substance: DEXAMETHASONE
  23. DEXAMETHASONE [Concomitant]
     Active Substance: DEXAMETHASONE
  24. DEXAMETHASONE [Concomitant]
     Active Substance: DEXAMETHASONE
  25. DEXAMETHASONE [Concomitant]
     Active Substance: DEXAMETHASONE
  26. DEXAMETHASONE [Concomitant]
     Active Substance: DEXAMETHASONE
  27. DEXAMETHASONE [Concomitant]
     Active Substance: DEXAMETHASONE
  28. FLUOROURACIL [Concomitant]
     Active Substance: FLUOROURACIL
     Indication: Ductal adenocarcinoma of pancreas
  29. LEVOLEUCOVORIN CALCIUM [Concomitant]
     Active Substance: LEVOLEUCOVORIN CALCIUM
     Indication: Ductal adenocarcinoma of pancreas

REACTIONS (3)
  - Death [Fatal]
  - Malignant neoplasm progression [Unknown]
  - Infusion related reaction [Unknown]
